FAERS Safety Report 9704777 (Version 1)
Quarter: 2013Q4

REPORT INFORMATION
  Report Type: Spontaneous
  Country: DE (occurrence: DE)
  Receive Date: 20131122
  Receipt Date: 20131122
  Transmission Date: 20140711
  Serious: Yes (Hospitalization)
  Sender: FDA-Public Use
  Company Number: GXKR2013DE003624

PATIENT
  Sex: 0

DRUGS (3)
  1. VENLAFAXINE [Suspect]
     Indication: DEPRESSION
     Dosage: 225 MG, UNK
     Route: 048
     Dates: start: 2010, end: 20130127
  2. VENLAFAXINE [Suspect]
     Dosage: 300 MG, UNK
     Route: 048
     Dates: start: 20130128, end: 20130403
  3. VENLAFAXINE [Suspect]
     Dosage: 300 - 75 MG (FOR THE TIME BEING)
     Route: 048
     Dates: start: 20130403

REACTIONS (1)
  - Bipolar I disorder [Recovered/Resolved]
